FAERS Safety Report 4619113-4 (Version None)
Quarter: 2005Q2

REPORT INFORMATION
  Report Type: 
  Country: None (occurrence: None)
  Receive Date: 20050321
  Receipt Date: 20050116
  Transmission Date: 20051028
  Serious: Yes (Disabling)
  Sender: FDA-Public Use
  Company Number: 2005-01-1055

PATIENT
  Age: 52 Year
  Sex: Female
  Weight: 65.7716 kg

DRUGS (3)
  1. PEG-INTRON [Suspect]
     Indication: HEPATITIS C
     Dates: start: 20021101, end: 20030701
  2. REBETOL [Suspect]
     Indication: HEPATITIS C
     Dosage: ORAL
     Route: 048
     Dates: start: 20021101, end: 20030701
  3. PAXIL [Concomitant]

REACTIONS (8)
  - ARTHRALGIA [None]
  - ARTHRITIS [None]
  - MENTAL DISORDER [None]
  - OEDEMA PERIPHERAL [None]
  - ORAL MUCOSAL DISORDER [None]
  - SKIN BURNING SENSATION [None]
  - SKIN DISORDER [None]
  - SKIN INFECTION [None]
